FAERS Safety Report 8455517-X (Version None)
Quarter: 2012Q2

REPORT INFORMATION
  Report Type: 
  Country: None (occurrence: None)
  Receive Date: 20120621
  Receipt Date: 20120612
  Transmission Date: 20120825
  Serious: Yes (Hospitalization, Disabling, Other)
  Sender: FDA-Public Use
  Company Number: US-MYLANLABS-2008AL009933

PATIENT
  Age: 80 Year
  Sex: Female
  Weight: 71.22 kg

DRUGS (36)
  1. HYDROCHLOROTHIAZIDE [Concomitant]
  2. NOLVADEX [Concomitant]
  3. ASPIRIN [Concomitant]
     Dosage: ENTERIC COATED
  4. QUININE SULFATE [Concomitant]
  5. PRED FORTE [Concomitant]
  6. OXYCODONE AND ACETAMINOPHEN [Concomitant]
  7. ZESTRIL [Concomitant]
  8. PAXIL [Concomitant]
  9. PROCHLORPERAZINE [Concomitant]
  10. LOVENOX [Concomitant]
  11. LISINOPRIL [Concomitant]
  12. ERY-TAB [Concomitant]
  13. ARICEPT [Concomitant]
  14. SPORANOX [Concomitant]
  15. CEPHALEXIN [Concomitant]
  16. TOPROL-XL [Concomitant]
  17. CELEBREX [Concomitant]
  18. PRINZIDE [Concomitant]
  19. FERROUS GLUCONATE [Concomitant]
  20. NAPROSYN [Concomitant]
  21. MOBIC [Concomitant]
  22. DETROL LA [Concomitant]
  23. WARFARIN SODIUM [Concomitant]
  24. METOPROLOL [Concomitant]
  25. DIFLUCAN [Concomitant]
  26. METRONIDAZOLE [Concomitant]
  27. POTASSIUM CHLORIDE [Concomitant]
  28. DIGOXIN [Suspect]
     Indication: ATRIAL FIBRILLATION
     Route: 048
     Dates: start: 19990429, end: 20080403
  29. ACETAMINOPHEN W/ CODEINE [Concomitant]
  30. FUROSEMIDE [Concomitant]
  31. PROPOXYPHENE NAPSYLATE W/ ACETAMINOPHEN [Concomitant]
     Dosage: 1-2 DAILY
  32. TAMOXIFEN CITRATE [Concomitant]
  33. LEVAQUIN [Concomitant]
  34. DAYPRO [Concomitant]
  35. PROPULSID [Concomitant]
  36. ZESTORETIC [Concomitant]
     Dosage: 20/25MG

REACTIONS (69)
  - PAIN [None]
  - CYST [None]
  - BRADYCARDIA [None]
  - PULMONARY EMBOLISM [None]
  - CEREBROVASCULAR DISORDER [None]
  - CARDIAC FAILURE CONGESTIVE [None]
  - DEMENTIA [None]
  - LEFT VENTRICULAR HYPERTROPHY [None]
  - CARDIOMEGALY [None]
  - ECHOCARDIOGRAM ABNORMAL [None]
  - DEHYDRATION [None]
  - AZOTAEMIA [None]
  - ANHEDONIA [None]
  - IRRITABILITY [None]
  - HEADACHE [None]
  - CHEST X-RAY ABNORMAL [None]
  - MITRAL VALVE INCOMPETENCE [None]
  - CARDIAC PACEMAKER INSERTION [None]
  - COMPUTERISED TOMOGRAM ABNORMAL [None]
  - URINARY INCONTINENCE [None]
  - ILL-DEFINED DISORDER [None]
  - DYSPNOEA [None]
  - ATROPHY [None]
  - DIZZINESS [None]
  - JOINT SWELLING [None]
  - SPINAL OSTEOARTHRITIS [None]
  - INJURY [None]
  - DEEP VEIN THROMBOSIS [None]
  - RENAL FAILURE [None]
  - DECREASED APPETITE [None]
  - INSOMNIA [None]
  - LABORATORY TEST ABNORMAL [None]
  - LYMPHOMA [None]
  - OOPHORECTOMY [None]
  - SICK SINUS SYNDROME [None]
  - SINUS ARRHYTHMIA [None]
  - URINARY TRACT INFECTION [None]
  - EMOTIONAL DISTRESS [None]
  - COUGH [None]
  - HYPERTENSION [None]
  - HYPOPROTEINAEMIA [None]
  - PAIN IN EXTREMITY [None]
  - DISCOMFORT [None]
  - CHEST PAIN [None]
  - ATRIOVENTRICULAR BLOCK FIRST DEGREE [None]
  - ATRIAL FIBRILLATION [None]
  - BREAST MASS [None]
  - INTERMITTENT CLAUDICATION [None]
  - DYSURIA [None]
  - ARTHRALGIA [None]
  - BACK PAIN [None]
  - MASTECTOMY [None]
  - PALPITATIONS [None]
  - PNEUMONIA [None]
  - WEIGHT DECREASED [None]
  - ANXIETY [None]
  - TOXICITY TO VARIOUS AGENTS [None]
  - BREAST CANCER [None]
  - ARTERIOSCLEROSIS [None]
  - BUNDLE BRANCH BLOCK RIGHT [None]
  - CATARACT [None]
  - CHRONIC OBSTRUCTIVE PULMONARY DISEASE [None]
  - ELECTROCARDIOGRAM ABNORMAL [None]
  - HYPOKALAEMIA [None]
  - NUCLEAR MAGNETIC RESONANCE IMAGING ABNORMAL [None]
  - HYPERTONIC BLADDER [None]
  - POSTMENOPAUSAL HAEMORRHAGE [None]
  - TACHYARRHYTHMIA [None]
  - VAGINAL HAEMORRHAGE [None]
